FAERS Safety Report 8828851 (Version 1)
Quarter: 2012Q4

REPORT INFORMATION
  Report Type: Report from Study
  Country: ES (occurrence: ES)
  Receive Date: 20121008
  Receipt Date: 20121008
  Transmission Date: 20130627
  Serious: Yes (Hospitalization)
  Sender: FDA-Public Use
  Company Number: ES-PFIZER INC-2012244191

PATIENT
  Age: 69 Year
  Sex: Female

DRUGS (7)
  1. DOXORUBICIN HCL [Suspect]
     Indication: BREAST CANCER
     Dosage: 85 mg, UNK
     Route: 042
     Dates: start: 20060707, end: 20060929
  2. FLUOROURACIL [Suspect]
     Indication: BREAST CANCER
     Dosage: 850 mg, UNK
     Route: 042
     Dates: start: 20060707, end: 20060929
  3. CYCLOPHOSPHAMIDE [Suspect]
     Indication: BREAST CANCER
     Dosage: 850 mg, UNK
     Route: 042
     Dates: start: 20060707, end: 20060929
  4. ALLOPURINOL [Concomitant]
  5. CALCIUM [Concomitant]
  6. AMERIDE [Concomitant]
  7. BETAMICIN [Concomitant]

REACTIONS (3)
  - Diabetic hyperosmolar coma [Recovered/Resolved]
  - Stomatitis [Recovered/Resolved]
  - Candidiasis [Recovered/Resolved]
